FAERS Safety Report 19584454 (Version 1)
Quarter: 2021Q3

REPORT INFORMATION
  Report Type: Report from Study
  Country: IT (occurrence: IT)
  Receive Date: 20210720
  Receipt Date: 20210720
  Transmission Date: 20211014
  Serious: Yes (Other)
  Sender: FDA-Public Use
  Company Number: IT-MYLANLABS-2021M1043623

PATIENT
  Age: 47 Year
  Sex: Female

DRUGS (4)
  1. ADALIMUMAB [Suspect]
     Active Substance: ADALIMUMAB
     Indication: ARTHRITIS
  2. ADALIMUMAB [Suspect]
     Active Substance: ADALIMUMAB
     Indication: SPONDYLITIS
     Dosage: UNK
     Route: 065
  3. GOLIMUMAB [Suspect]
     Active Substance: GOLIMUMAB
     Indication: ARTHRITIS
  4. GOLIMUMAB [Suspect]
     Active Substance: GOLIMUMAB
     Indication: SPONDYLITIS
     Route: 065

REACTIONS (2)
  - Hepatitis B reactivation [Unknown]
  - Immune reconstitution inflammatory syndrome [Unknown]
